FAERS Safety Report 9567791 (Version 2)
Quarter: 2013Q3

REPORT INFORMATION
  Report Type: Spontaneous
  Country: US (occurrence: US)
  Receive Date: 20130930
  Receipt Date: 20130930
  Transmission Date: 20140515
  Serious: No
  Sender: FDA-Public Use
  Company Number: US-AMGEN-USASP2013014187

PATIENT
  Age: 29 Year
  Sex: Female
  Weight: 98.43 kg

DRUGS (4)
  1. ENBREL [Suspect]
     Indication: PSORIATIC ARTHROPATHY
     Dosage: 50 MG, QWK
     Route: 058
     Dates: start: 201210, end: 201301
  2. ENBREL [Suspect]
     Indication: PSORIASIS
  3. MOBIC [Concomitant]
     Dosage: 15 MG, DAILY
     Route: 048
     Dates: start: 201301
  4. METHOTREXATE [Concomitant]
     Dosage: 15 MG, QWK
     Route: 048
     Dates: start: 201207

REACTIONS (4)
  - Skin plaque [Not Recovered/Not Resolved]
  - Drug ineffective [Recovered/Resolved]
  - Psoriasis [Unknown]
  - Injection site bruising [Recovered/Resolved]
